FAERS Safety Report 9886859 (Version 1)
Quarter: 2014Q1

REPORT INFORMATION
  Report Type: Report from Study
  Country: US (occurrence: US)
  Receive Date: 20140210
  Receipt Date: 20140210
  Transmission Date: 20141002
  Serious: Yes (Hospitalization, Other)
  Sender: FDA-Public Use
  Company Number: US-ABBVIE-14P-163-1196374-00

PATIENT
  Age: 24 Year
  Sex: Female

DRUGS (3)
  1. HUMIRA [Suspect]
     Indication: CROHN^S DISEASE
     Dates: end: 201305
  2. HUMIRA [Suspect]
     Dates: start: 201312
  3. HUMIRA [Suspect]
     Dates: start: 20140116

REACTIONS (6)
  - Gastritis [Unknown]
  - Abscess intestinal [Recovering/Resolving]
  - Crohn^s disease [Not Recovered/Not Resolved]
  - Drug effect decreased [Not Recovered/Not Resolved]
  - Incorrect dose administered [Unknown]
  - Incorrect dose administered [Unknown]
